FAERS Safety Report 6833724-7 (Version None)
Quarter: 2010Q3

REPORT INFORMATION
  Report Type: 
  Country: None (occurrence: None)
  Receive Date: 20100712
  Receipt Date: 20070330
  Transmission Date: 20110219
  Serious: No
  Sender: FDA-Public Use
  Company Number: US-PFIZER INC-2007027235

PATIENT
  Sex: Female
  Weight: 68.95 kg

DRUGS (7)
  1. CHANTIX [Suspect]
     Indication: SMOKING CESSATION THERAPY
  2. DEPAKOTE [Concomitant]
  3. RISPERDAL [Concomitant]
  4. SERTRALINE HCL [Concomitant]
  5. HYDROXYZINE [Concomitant]
  6. MELOXICAM [Concomitant]
  7. ALBUTEROL [Concomitant]
     Route: 055

REACTIONS (1)
  - MYALGIA [None]
